FAERS Safety Report 6245680-3 (Version None)
Quarter: 2009Q2

REPORT INFORMATION
  Report Type: 
  Country: None (occurrence: None)
  Receive Date: 20090625
  Receipt Date: 20090618
  Transmission Date: 20091009
  Serious: Yes (Hospitalization)
  Sender: FDA-Public Use
  Company Number: TR-ABBOTT-09P-161-0580574-00

PATIENT
  Age: 57 Year
  Sex: Female
  Weight: 130 kg

DRUGS (4)
  1. TARKA [Suspect]
     Indication: HYPERTENSION
     Dosage: 4/240MG
     Route: 048
     Dates: start: 20090605, end: 20090606
  2. DIGOXIN [Concomitant]
     Indication: MITRAL VALVE DISEASE
     Route: 048
  3. PROPYL-THIOURACIL [Concomitant]
     Indication: HYPERTHYROIDISM
     Route: 048
  4. WARFARIN SODIUM [Concomitant]
     Indication: MITRAL VALVE DISEASE
     Route: 048

REACTIONS (4)
  - BRADYCARDIA [None]
  - DYSPNOEA [None]
  - HYPOTENSION [None]
  - URINARY INCONTINENCE [None]
